FAERS Safety Report 24215173 (Version 1)
Quarter: 2024Q3

REPORT INFORMATION
  Report Type: Spontaneous
  Country: GB (occurrence: GB)
  Receive Date: 20240816
  Receipt Date: 20240816
  Transmission Date: 20241017
  Serious: Yes (Other)
  Sender: NOVO NORDISK
  Company Number: GB-MHRA-TPP10583910C23209919YC1722608417422

PATIENT
  Age: 48 Year
  Sex: Female
  Weight: 89 kg

DRUGS (19)
  1. RYBELSUS [Suspect]
     Active Substance: SEMAGLUTIDE
     Indication: Product used for unknown indication
     Dosage: 3 MG
  2. FLUCLOXACILLIN [Concomitant]
     Active Substance: FLUCLOXACILLIN
     Indication: Ill-defined disorder
     Dosage: 1 DF, QID
     Dates: start: 20240530, end: 20240606
  3. FLUTICASONE PROPIONATE [Concomitant]
     Active Substance: FLUTICASONE PROPIONATE
     Indication: Ill-defined disorder
     Dosage: 2 DF, QD (BOTH NOSTRILS)
     Dates: start: 20240531, end: 20240628
  4. OXYBUTYNIN [Concomitant]
     Active Substance: OXYBUTYNIN\OXYBUTYNIN CHLORIDE
     Indication: Ill-defined disorder
     Dosage: 1 DF, QOD, TO TREAT BLADDER SYMPTOMS
     Dates: start: 20240701, end: 20240729
  5. PENICILLIN V [Concomitant]
     Active Substance: PENICILLIN V
     Indication: Ill-defined disorder
     Dosage: 2 DF EVERY 4 DAY,
     Dates: start: 20240703, end: 20240708
  6. SEMAGLUTIDE [Concomitant]
     Active Substance: SEMAGLUTIDE
     Indication: Ill-defined disorder
     Dosage: 1 DF TAKEN ONE FOR A MONTH--REPLACES TRULICITY
     Dates: start: 20240705
  7. TRULICITY [Concomitant]
     Active Substance: DULAGLUTIDE
     Indication: Ill-defined disorder
     Dosage: 1.5 MG, QW
     Route: 058
     Dates: start: 20230131, end: 20240705
  8. DESOGESTREL [Concomitant]
     Active Substance: DESOGESTREL
     Indication: Ill-defined disorder
     Dosage: 1 DF, QD
     Dates: start: 20230131
  9. CO-DYDRAMOL [Concomitant]
     Active Substance: ACETAMINOPHEN\DIHYDROCODEINE
     Indication: Ill-defined disorder
     Dosage: TAKE 1-2 UP TO TO BE TAKEN FOUR TIMES DAILY WHE...
     Dates: start: 20230131
  10. FEXOFENADINE [Concomitant]
     Active Substance: FEXOFENADINE HYDROCHLORIDE
     Indication: Ill-defined disorder
     Dosage: 1 DF, QD
     Dates: start: 20230131
  11. GLUCORX NEXUS [Concomitant]
     Indication: Ill-defined disorder
     Dosage: USE AS DIRECTED
     Dates: start: 20230131
  12. OMEPRAZOLE [Concomitant]
     Active Substance: OMEPRAZOLE
     Indication: Ill-defined disorder
     Dosage: 1 DF, QD DOSETT PLEASE
     Dates: start: 20230131
  13. SERTRALINE [Concomitant]
     Active Substance: SERTRALINE HYDROCHLORIDE
     Indication: Ill-defined disorder
     Dosage: 1 DF, QD
     Dates: start: 20230131
  14. UTROGESTAN [Concomitant]
     Active Substance: PROGESTERONE
     Indication: Ill-defined disorder
     Dosage: 2 DF, QD AT BEDTIME FOR T...
     Dates: start: 20230131
  15. ETORICOXIB [Concomitant]
     Active Substance: ETORICOXIB
     Indication: Ill-defined disorder
     Dosage: 1 DF, QD
     Dates: start: 20230418
  16. LANSOPRAZOLE [Concomitant]
     Active Substance: LANSOPRAZOLE
     Indication: Ill-defined disorder
     Dosage: 1 DF, QD
     Dates: start: 20230418
  17. METFORMIN [Concomitant]
     Active Substance: METFORMIN HYDROCHLORIDE
     Indication: Ill-defined disorder
     Dosage: 2 DF, QD
     Dates: start: 20240308
  18. ESTRADIOL [Concomitant]
     Active Substance: ESTRADIOL
     Indication: Ill-defined disorder
     Dosage: 3 DF, QD APPLY PUMPS
     Dates: start: 20240322
  19. GLICLAZIDE [Concomitant]
     Active Substance: GLICLAZIDE
     Indication: Ill-defined disorder
     Dosage: 2 DF, QOD WITH MEALS
     Dates: start: 20240417

REACTIONS (1)
  - Vision blurred [Unknown]
